FAERS Safety Report 17339141 (Version 1)
Quarter: 2020Q1

REPORT INFORMATION
  Report Type: Spontaneous
  Country: US (occurrence: US)
  Receive Date: 20200113
  Receipt Date: 20200113
  Transmission Date: 20200409
  Serious: Yes (Other)
  Sender: FDA-Public Use
  Company Number: None

PATIENT
  Age: 74 Year
  Sex: Male
  Weight: 70.76 kg

DRUGS (2)
  1. L-THYROXINE TABS GENERIC FOR SYNTHROID [Concomitant]
  2. LATANOPROST. [Suspect]
     Active Substance: LATANOPROST
     Indication: GLAUCOMA
     Dosage: ?          QUANTITY:2.5 ML MILLILITRE(S);OTHER FREQUENCY:1 DROP EACH EYE, D;?
     Route: 047
     Dates: start: 201911, end: 20191212

REACTIONS (6)
  - Malaise [None]
  - Headache [None]
  - Influenza [None]
  - Pyrexia [None]
  - Chills [None]
  - Tremor [None]

NARRATIVE: CASE EVENT DATE: 20191212
